FAERS Safety Report 8468962 (Version 2)
Quarter: 2012Q4

REPORT INFORMATION
  Report Type: 
  Country: DK (occurrence: DK)
  Receive Date: 20120321
  Receipt Date: 20121026
  Transmission Date: 20130627
  Serious: Yes (Death, Other)
  Sender: FDA-Public Use
  Company Number: DK-ROCHE-1046422

PATIENT
  Age: 74 None
  Sex: Male

DRUGS (2)
  1. CELLCEPT [Suspect]
     Indication: RENAL FAILURE ACUTE
     Dosage: Dose: 500-1000 mg daily
     Route: 065
     Dates: start: 20110316, end: 20110926
  2. PREDNISOLON [Concomitant]
     Indication: RENAL FAILURE ACUTE
     Route: 065
     Dates: start: 20110316, end: 20110926

REACTIONS (6)
  - Acute myeloid leukaemia [Fatal]
  - Chronic myeloid leukaemia [Fatal]
  - Thrombocytopenia [Not Recovered/Not Resolved]
  - Neutropenia [Not Recovered/Not Resolved]
  - Anaemia [Not Recovered/Not Resolved]
  - Bone marrow failure [Not Recovered/Not Resolved]
